FAERS Safety Report 4454627-1 (Version None)
Quarter: 2004Q3

REPORT INFORMATION
  Report Type: 
  Country: None (occurrence: None)
  Receive Date: 20040920
  Receipt Date: 20040920
  Transmission Date: 20050211
  Serious: Yes (Hospitalization)
  Sender: FDA-Public Use
  Company Number: None

PATIENT
  Age: 81 Year
  Sex: Female

DRUGS (2)
  1. RITUXIMAB [Suspect]
     Indication: LYMPHOMA
     Dosage: 400 MG X 1 IV
     Route: 042
     Dates: start: 20040706, end: 20040706
  2. CELECOXIB [Concomitant]

REACTIONS (2)
  - ANAPHYLACTIC REACTION [None]
  - ANTIBODY TEST POSITIVE [None]
